FAERS Safety Report 12155197 (Version 1)
Quarter: 2016Q1

REPORT INFORMATION
  Report Type: Spontaneous
  Country: US (occurrence: None)
  Receive Date: 20160304
  Receipt Date: 20160304
  Transmission Date: 20160526
  Serious: Yes (Other)
  Sender: FDA-Public Use
  Company Number: None

PATIENT

DRUGS (1)
  1. IONSYS [Suspect]
     Active Substance: FENTANYL HYDROCHLORIDE

REACTIONS (2)
  - Application site erosion [None]
  - Application site burn [None]
